FAERS Safety Report 9000883 (Version 1)
Quarter: 2013Q1

REPORT INFORMATION
  Report Type: Spontaneous
  Country: US (occurrence: None)
  Receive Date: 20130103
  Receipt Date: 20130103
  Transmission Date: 20140127
  Serious: Yes (Other)
  Sender: FDA-Public Use
  Company Number: None

PATIENT
  Age: 37 Year
  Sex: Female

DRUGS (1)
  1. ALCAFTADINE [Suspect]

REACTIONS (5)
  - Feeling abnormal [None]
  - Fatigue [None]
  - Vision blurred [None]
  - Eye irritation [None]
  - Activities of daily living impaired [None]
